FAERS Safety Report 11852151 (Version 1)
Quarter: 2015Q4

REPORT INFORMATION
  Report Type: Spontaneous
  Country: US (occurrence: US)
  Receive Date: 20151218
  Receipt Date: 20151218
  Transmission Date: 20160305
  Serious: No
  Sender: FDA-Public Use
  Company Number: US-FRESENIUS KABI-FK201506645

PATIENT
  Age: 53 Year
  Sex: Female
  Weight: 68.95 kg

DRUGS (2)
  1. NAROPIN [Suspect]
     Active Substance: ROPIVACAINE HYDROCHLORIDE
     Indication: SURGERY
     Route: 065
  2. NAROPIN [Suspect]
     Active Substance: ROPIVACAINE HYDROCHLORIDE
     Route: 065

REACTIONS (2)
  - Procedural pain [Recovered/Resolved]
  - Drug ineffective [Recovered/Resolved]
